FAERS Safety Report 7702124 (Version 4)
Quarter: 2013Q3

REPORT INFORMATION
  Report Type: Spontaneous
  Country: US (occurrence: US)
  Receive Date: 20101209
  Receipt Date: 20130808
  Transmission Date: 20140515
  Serious: Yes (Hospitalization)
  Sender: FDA-Public Use
  Company Number: US-B.I. PHARMACEUTICALS,INC./RIDGEFIELD-2010-BP-13721BP

PATIENT
  Age: 72 Year
  Sex: Female

DRUGS (8)
  1. PRADAXA [Suspect]
     Indication: ATRIAL FIBRILLATION
     Dosage: 300 MG
     Route: 048
     Dates: start: 20101111
  2. WARFARIN [Concomitant]
     Indication: ATRIAL FIBRILLATION
     Dates: end: 201011
  3. TRICOR [Concomitant]
     Indication: BLOOD CHOLESTEROL INCREASED
     Dosage: 145 MG
  4. METOPROLOL [Concomitant]
     Indication: ATRIAL FIBRILLATION
     Dosage: 100 MG
  5. ACTONEL [Concomitant]
     Indication: OSTEOPENIA
  6. MULTAQ [Concomitant]
     Dosage: 800 MG
  7. FUROSEMIDE [Concomitant]
     Dosage: 20 MG
  8. LEXAPRO [Concomitant]
     Dosage: 10 MG

REACTIONS (4)
  - Pleural effusion [Recovered/Resolved]
  - Gingival bleeding [Recovered/Resolved]
  - Atrial fibrillation [Recovered/Resolved]
  - Atrial fibrillation [Recovered/Resolved]
